FAERS Safety Report 8385843-4 (Version None)
Quarter: 2012Q2

REPORT INFORMATION
  Report Type: 
  Country: None (occurrence: None)
  Receive Date: 20120525
  Receipt Date: 20120511
  Transmission Date: 20120825
  Serious: Yes (Other)
  Sender: FDA-Public Use
  Company Number: CH-JNJFOC-20120514667

PATIENT
  Age: 31 Year
  Sex: Female

DRUGS (4)
  1. ARTHROTEC [Suspect]
     Indication: PAIN
     Route: 048
     Dates: start: 20120210, end: 20120224
  2. TRAMADOL HYDROCHLORIDE [Suspect]
     Indication: PAIN
     Route: 065
     Dates: start: 20120210, end: 20120224
  3. DIPYRONE TAB [Suspect]
     Indication: PAIN
     Route: 048
     Dates: start: 20120210, end: 20120224
  4. OXAZEPAM [Suspect]
     Indication: PAIN
     Route: 065
     Dates: start: 20120210, end: 20120224

REACTIONS (2)
  - ABORTION INDUCED [None]
  - MATERNAL EXPOSURE DURING PREGNANCY [None]
